FAERS Safety Report 7891551-6 (Version None)
Quarter: 2011Q4

REPORT INFORMATION
  Report Type: 
  Country: None (occurrence: None)
  Receive Date: 20111103
  Receipt Date: 20110804
  Transmission Date: 20120403
  Serious: No
  Sender: FDA-Public Use
  Company Number: US-AMGEN-USASP2011039836

PATIENT
  Age: 68 Year
  Sex: Female

DRUGS (3)
  1. SIMVASTATIN [Concomitant]
  2. ENBREL [Suspect]
     Indication: RHEUMATOID ARTHRITIS
     Dosage: 50 MG, QWK
     Route: 058
     Dates: start: 19981201
  3. PREMARIN [Concomitant]

REACTIONS (1)
  - HEADACHE [None]
